FAERS Safety Report 8019460-2 (Version None)
Quarter: 2012Q1

REPORT INFORMATION
  Report Type: 
  Country: None (occurrence: None)
  Receive Date: 20120103
  Receipt Date: 20111228
  Transmission Date: 20120608
  Serious: Yes (Other)
  Sender: FDA-Public Use
  Company Number: PHEH2011US009896

PATIENT
  Sex: Female

DRUGS (7)
  1. GLUCOSAMINE [Concomitant]
     Dosage: UNK UKN, UNK
  2. LUTEIN [Concomitant]
     Dosage: UNK UKN, UNK
  3. METOPROLOL [Concomitant]
     Indication: BLOOD PRESSURE
     Dosage: 25 MG
  4. SIMVASTATIN [Concomitant]
     Dosage: 10 MG
  5. EXELON [Suspect]
     Indication: COGNITIVE DISORDER
     Dosage: 4.6 MG/24 HRS
     Route: 062
     Dates: start: 20111019
  6. EXELON [Suspect]
     Dosage: 4.6 MG/24 HRS
     Route: 062
     Dates: end: 20111214
  7. MULTI-VITAMIN [Concomitant]
     Dosage: UNK UKN, UNK

REACTIONS (3)
  - APPLICATION SITE INFECTION [None]
  - APPLICATION SITE ERYTHEMA [None]
  - APPLICATION SITE PAIN [None]
